FAERS Safety Report 5503418-9 (Version None)
Quarter: 2007Q4

REPORT INFORMATION
  Report Type: 
  Country: None (occurrence: None)
  Receive Date: 20071031
  Receipt Date: 20071019
  Transmission Date: 20080405
  Serious: Yes (Other)
  Sender: FDA-Public Use
  Company Number: NO-PFIZER INC-2007087581

PATIENT
  Sex: Female

DRUGS (1)
  1. DALACINE [Suspect]
     Route: 048
     Dates: start: 20070829, end: 20070829

REACTIONS (2)
  - PARAESTHESIA [None]
  - RASH ERYTHEMATOUS [None]
